FAERS Safety Report 17963296 (Version 1)
Quarter: 2020Q2

REPORT INFORMATION
  Report Type: Report from Study
  Country: None (occurrence: US)
  Receive Date: 20200630
  Receipt Date: 20200630
  Transmission Date: 20200714
  Serious: No
  Sender: FDA-Public Use
  Company Number: US-BIOVITRUM-2018US1559

PATIENT
  Sex: Female

DRUGS (3)
  1. PREDNISONE. [Concomitant]
     Active Substance: PREDNISONE
  2. KINERET [Suspect]
     Active Substance: ANAKINRA
     Indication: RHEUMATOID ARTHRITIS
     Route: 058
  3. IG INFUSIONS [Concomitant]

REACTIONS (8)
  - Injection site erythema [Unknown]
  - Injection site bruising [Unknown]
  - Injection site rash [Unknown]
  - Muscular weakness [Unknown]
  - Injection site pruritus [Unknown]
  - Injection site pain [Unknown]
  - Urinary tract infection [Unknown]
  - Exposure via skin contact [Unknown]
